FAERS Safety Report 9612508 (Version 2)
Quarter: 2014Q1

REPORT INFORMATION
  Report Type: Spontaneous
  Country: JP (occurrence: JP)
  Receive Date: 20131010
  Receipt Date: 20140127
  Transmission Date: 20141002
  Serious: Yes (Death)
  Sender: FDA-Public Use
  Company Number: JP-SA-2013SA099544

PATIENT
  Age: 58 Year
  Sex: Male
  Weight: 72 kg

DRUGS (10)
  1. ELPLAT [Suspect]
     Indication: RECTAL CANCER
     Route: 041
     Dates: start: 20130722, end: 20130722
  2. ELPLAT [Suspect]
     Indication: RECTAL CANCER
     Route: 041
     Dates: start: 20130812, end: 20130812
  3. ELPLAT [Suspect]
     Indication: RECTAL CANCER
     Route: 041
     Dates: start: 20130902, end: 20130902
  4. ELPLAT [Suspect]
     Indication: RECTAL CANCER
     Route: 041
     Dates: start: 20130930, end: 20130930
  5. XELODA [Concomitant]
     Dates: start: 20130722, end: 20130915
  6. GRANISETRON [Concomitant]
     Dates: start: 20130722, end: 20130930
  7. DEXART [Concomitant]
     Dates: start: 20130722, end: 20130930
  8. PRIMPERAN [Concomitant]
     Dates: start: 20130930, end: 20130930
  9. NICARDIPINE HYDROCHLORIDE [Concomitant]
     Dates: start: 20130930, end: 20130930
  10. GASTER [Concomitant]
     Dates: start: 20130930, end: 20130930

REACTIONS (1)
  - Immune thrombocytopenic purpura [Fatal]
